FAERS Safety Report 14598624 (Version 2)
Quarter: 2018Q1

REPORT INFORMATION
  Report Type: Spontaneous
  Country: IT (occurrence: IT)
  Receive Date: 20180305
  Receipt Date: 20180315
  Transmission Date: 20180509
  Serious: Yes (Other)
  Sender: FDA-Public Use
  Company Number: IT-ELI_LILLY_AND_COMPANY-IT201802012708

PATIENT
  Age: 71 Year
  Sex: Male
  Weight: 65 kg

DRUGS (4)
  1. ERBITUX [Suspect]
     Active Substance: CETUXIMAB
     Indication: COLON CANCER RECURRENT
     Dosage: 445 MG, CYCLICAL
     Route: 042
     Dates: start: 20170713, end: 20180207
  2. FLUOROURACIL. [Suspect]
     Active Substance: FLUOROURACIL
     Indication: COLON CANCER RECURRENT
     Dosage: 3204 MG, CYCLICAL
     Route: 042
     Dates: start: 20170824, end: 20171019
  3. IRINOTECAN HYDROCHLORIDE TRIHYDRATE/01280202/ [Suspect]
     Active Substance: IRINOTECAN HYDROCHLORIDE
     Indication: COLON CANCER RECURRENT
     Dosage: 225 MG, CYCLICAL
     Route: 042
     Dates: start: 20170720, end: 20171214
  4. LEVOLEUCOVORIN                     /06682101/ [Concomitant]
     Active Substance: LEVOLEUCOVORIN
     Indication: COLON CANCER RECURRENT
     Dosage: 356 MG, CYCLICAL
     Route: 042
     Dates: start: 20170824, end: 20171019

REACTIONS (2)
  - Neutropenia [Recovering/Resolving]
  - Thrombocytopenia [Recovering/Resolving]

NARRATIVE: CASE EVENT DATE: 20170912
